FAERS Safety Report 12994786 (Version 1)
Quarter: 2016Q4

REPORT INFORMATION
  Report Type: Report from Study
  Country: None (occurrence: CO)
  Receive Date: 20161202
  Receipt Date: 20161202
  Transmission Date: 20170207
  Serious: Yes (Death)
  Sender: FDA-Public Use
  Company Number: CO-ABBVIE-16P-036-1796500-00

PATIENT
  Age: 56 Year
  Sex: Female
  Weight: 62 kg

DRUGS (1)
  1. PARICALCITOL. [Suspect]
     Active Substance: PARICALCITOL
     Indication: HYPERPARATHYROIDISM SECONDARY
     Route: 042
     Dates: start: 20140811, end: 20160919

REACTIONS (4)
  - Respiratory disorder [Fatal]
  - Infarction [Fatal]
  - Chest pain [Fatal]
  - Blood pressure increased [Fatal]

NARRATIVE: CASE EVENT DATE: 20161117
